FAERS Safety Report 10359984 (Version 1)
Quarter: 2014Q3

REPORT INFORMATION
  Report Type: Spontaneous
  Country: US (occurrence: US)
  Receive Date: 20140804
  Receipt Date: 20140804
  Transmission Date: 20150326
  Serious: No
  Sender: FDA-Public Use
  Company Number: US-PFIZER INC-2014215448

PATIENT
  Age: 54 Year
  Sex: Female

DRUGS (1)
  1. ESTRING [Suspect]
     Active Substance: ESTRADIOL
     Indication: HOT FLUSH
     Dosage: 2 MG, UNK
     Route: 067

REACTIONS (3)
  - Laceration [Unknown]
  - Application site haemorrhage [Unknown]
  - Product quality issue [Unknown]
